FAERS Safety Report 18731041 (Version 1)
Quarter: 2021Q1

REPORT INFORMATION
  Report Type: Spontaneous
  Country: US (occurrence: US)
  Receive Date: 20210112
  Receipt Date: 20210112
  Transmission Date: 20210419
  Serious: No
  Sender: FDA-Public Use
  Company Number: US-PFIZER INC-2020518197

PATIENT
  Sex: Female

DRUGS (2)
  1. EMERGEN?C [Suspect]
     Active Substance: VITAMINS
     Dosage: UNK, DAILY (EVERYDAY)
     Dates: start: 20201218
  2. PROPANOLOL HCL [Suspect]
     Active Substance: PROPRANOLOL HYDROCHLORIDE
     Dosage: UNK, DAILY (EVERYDAY)

REACTIONS (2)
  - Peripheral swelling [Unknown]
  - Ecchymosis [Unknown]

NARRATIVE: CASE EVENT DATE: 202012
